FAERS Safety Report 8483293-3 (Version None)
Quarter: 2012Q2

REPORT INFORMATION
  Report Type: 
  Country: None (occurrence: None)
  Receive Date: 20120625
  Receipt Date: 20120615
  Transmission Date: 20120825
  Serious: Yes (Other)
  Sender: FDA-Public Use
  Company Number: DSA_57994_2012

PATIENT

DRUGS (5)
  1. FLUOROURACIL [Suspect]
     Indication: BREAST CANCER
     Dosage: (600 MG/M2 (EVERY 3 WEEKS))
  2. EPIRUBICIN [Suspect]
     Indication: BREAST CANCER
     Dosage: (100 MG/M2 (EVERY 3 WEEKS))
  3. CYCLOPHOSPHAMIDE [Suspect]
     Indication: BREAST CANCER
     Dosage: (600 MG/M2 (EVERY 3 WEEKS))
  4. DOCETAXEL [Suspect]
     Indication: BREAST CANCER
     Dosage: (100 MG/M2 (EVERY 3 WEEKS))
  5. FILGRASTIM [Concomitant]

REACTIONS (1)
  - NEUTROPENIA [None]
